FAERS Safety Report 12843754 (Version 3)
Quarter: 2017Q1

REPORT INFORMATION
  Report Type: Report from Study
  Country: US (occurrence: US)
  Receive Date: 20161013
  Receipt Date: 20170209
  Transmission Date: 20170428
  Serious: No
  Sender: FDA-Public Use
  Company Number: PHEH2016US026216

PATIENT
  Sex: Male

DRUGS (2)
  1. COSENTYX [Suspect]
     Active Substance: SECUKINUMAB
     Dosage: 300 MG, EVERY28 DAYS
     Route: 058
     Dates: start: 20161231
  2. COSENTYX [Suspect]
     Active Substance: SECUKINUMAB
     Indication: PSORIASIS
     Dosage: 300 MG, EVERY28 DAYS
     Route: 058

REACTIONS (4)
  - Rash [Unknown]
  - Muscle spasms [Unknown]
  - Drug ineffective [Unknown]
  - Psoriasis [Unknown]
